FAERS Safety Report 8814098 (Version 1)
Quarter: 2012Q4

REPORT INFORMATION
  Report Type: Spontaneous
  Country: GB (occurrence: None)
  Receive Date: 20120925
  Receipt Date: 20120925
  Transmission Date: 20130627
  Serious: Yes (Disabling)
  Sender: FDA-Public Use
  Company Number: GER/UKI/12/0025938

PATIENT
  Age: 15 Year
  Sex: Female
  Weight: 61 kg

DRUGS (2)
  1. LAMOTRIGINE (LAMOTRIGINE) [Suspect]
     Route: 048
     Dates: start: 201106, end: 201203
  2. LEVETIRACETAM (LEVETIRACETAM) [Concomitant]

REACTIONS (2)
  - Memory impairment [None]
  - Educational problem [None]
